FAERS Safety Report 6153804-1 (Version None)
Quarter: 2009Q2

REPORT INFORMATION
  Report Type: 
  Country: None (occurrence: None)
  Receive Date: 20090414
  Receipt Date: 20071008
  Transmission Date: 20091009
  Serious: Yes (Death, Other)
  Sender: FDA-Public Use
  Company Number: US-ASTRAZENECA-2006UW21524

PATIENT
  Age: 78 Year
  Sex: Male
  Weight: 63.5 kg

DRUGS (93)
  1. SEROQUEL [Suspect]
     Indication: ANXIETY
     Route: 048
     Dates: start: 20030101, end: 20060909
  2. SEROQUEL [Suspect]
     Indication: THINKING ABNORMAL
     Route: 048
     Dates: start: 20030101, end: 20060909
  3. SEROQUEL [Suspect]
     Route: 048
     Dates: start: 20030509, end: 20040509
  4. SEROQUEL [Suspect]
     Route: 048
     Dates: start: 20030509, end: 20040509
  5. SEROQUEL [Suspect]
     Route: 048
     Dates: start: 20040401, end: 20050402
  6. SEROQUEL [Suspect]
     Route: 048
     Dates: start: 20040401, end: 20050402
  7. SEROQUEL [Suspect]
     Route: 048
     Dates: start: 20041005, end: 20051006
  8. SEROQUEL [Suspect]
     Route: 048
     Dates: start: 20041005, end: 20051006
  9. SEROQUEL [Suspect]
     Route: 048
     Dates: start: 20050922
  10. SEROQUEL [Suspect]
     Route: 048
     Dates: start: 20050922
  11. SEROQUEL [Suspect]
     Route: 048
     Dates: start: 20060109
  12. SEROQUEL [Suspect]
     Route: 048
     Dates: start: 20060109
  13. SEROQUEL [Suspect]
     Dosage: ONE TABLET IN MORNING THEN TWO TABLETS EVENING
     Route: 048
     Dates: start: 20060403
  14. SEROQUEL [Suspect]
     Dosage: ONE TABLET IN MORNING THEN TWO TABLETS EVENING
     Route: 048
     Dates: start: 20060403
  15. SEROQUEL [Suspect]
     Dosage: ONE TABLET IN MORNING THEN TWO TABLETS EVENING
     Route: 048
     Dates: start: 20060403
  16. SEROQUEL [Suspect]
     Dosage: ONE TABLET IN MORNING THEN TWO TABLETS EVENING
     Route: 048
     Dates: start: 20060403
  17. ROSIGLITAZONE MALEATE [Concomitant]
     Indication: BLOOD GLUCOSE ABNORMAL
     Route: 048
     Dates: start: 20050823, end: 20060824
  18. ROSIGLITAZONE MALEATE [Concomitant]
     Route: 048
     Dates: start: 20060724
  19. ROSIGLITAZONE MALEATE [Concomitant]
     Route: 048
     Dates: start: 20060403
  20. TRAZODONE HCL [Concomitant]
     Route: 048
     Dates: start: 20050408, end: 20060409
  21. TRAZODONE HCL [Concomitant]
     Route: 048
     Dates: start: 20060109
  22. TRAZODONE HCL [Concomitant]
     Route: 048
     Dates: start: 20060405
  23. TRAZODONE HCL [Concomitant]
     Route: 048
     Dates: start: 20060403
  24. SIMVASTATIN [Concomitant]
     Indication: BLOOD CHOLESTEROL
     Route: 048
     Dates: start: 20041005, end: 20051006
  25. SIMVASTATIN [Concomitant]
     Route: 048
     Dates: start: 20050411, end: 20060412
  26. SIMVASTATIN [Concomitant]
     Route: 048
     Dates: start: 20060403
  27. SIMVASTATIN [Concomitant]
     Route: 048
     Dates: start: 20060403
  28. GLIPIZIDE [Concomitant]
     Indication: BLOOD GLUCOSE INCREASED
     Route: 048
     Dates: start: 20020920, end: 20021219
  29. GLIPIZIDE [Concomitant]
     Route: 048
     Dates: start: 20030109, end: 20030409
  30. GLIPIZIDE [Concomitant]
     Route: 048
     Dates: start: 20030115, end: 20040116
  31. GLIPIZIDE [Concomitant]
     Route: 048
     Dates: start: 20030117, end: 20040118
  32. GLIPIZIDE [Concomitant]
     Route: 048
     Dates: start: 20040310, end: 20050311
  33. GLIPIZIDE [Concomitant]
     Route: 048
     Dates: start: 20040401, end: 20050402
  34. GLIPIZIDE [Concomitant]
     Route: 048
     Dates: start: 20041005, end: 20051006
  35. GLIPIZIDE [Concomitant]
     Dosage: 1 TABLET EVERY MORNING, 2 TABLETS EVERY EVENING
     Route: 048
     Dates: start: 20050408, end: 20060409
  36. GLIPIZIDE [Concomitant]
     Dosage: 1 TABLET EVERY MORNING, 2 TABLETS EVERY EVENING
     Route: 048
     Dates: start: 20050408, end: 20060409
  37. GLIPIZIDE [Concomitant]
     Route: 048
     Dates: start: 20050823, end: 20060824
  38. GLIPIZIDE [Concomitant]
     Dates: start: 20060822
  39. OLANZAPINE [Concomitant]
     Route: 048
     Dates: start: 20030109, end: 20030208
  40. OLANZAPINE [Concomitant]
     Route: 048
     Dates: start: 20020920, end: 20030921
  41. FOSINOPRIL NA [Concomitant]
     Indication: BLOOD PRESSURE
     Route: 048
     Dates: start: 20030115, end: 20040116
  42. FOSINOPRIL NA [Concomitant]
     Indication: PROPHYLAXIS
     Route: 048
     Dates: start: 20030115, end: 20040116
  43. FOSINOPRIL NA [Concomitant]
     Route: 048
     Dates: start: 20030509, end: 20040509
  44. FOSINOPRIL NA [Concomitant]
     Route: 048
     Dates: start: 20030509, end: 20040509
  45. FOSINOPRIL NA [Concomitant]
     Route: 048
     Dates: start: 20040310, end: 20050311
  46. FOSINOPRIL NA [Concomitant]
     Route: 048
     Dates: start: 20040310, end: 20050311
  47. FOSINOPRIL NA [Concomitant]
     Route: 048
     Dates: start: 20041005, end: 20051006
  48. FOSINOPRIL NA [Concomitant]
     Route: 048
     Dates: start: 20041005, end: 20051006
  49. GEMFIBROZIL [Concomitant]
     Indication: BLOOD TRIGLYCERIDES INCREASED
     Route: 048
     Dates: start: 20030115, end: 20040116
  50. GEMFIBROZIL [Concomitant]
     Indication: BLOOD CHOLESTEROL
     Route: 048
     Dates: start: 20030115, end: 20040116
  51. GEMFIBROZIL [Concomitant]
     Route: 048
     Dates: start: 20030509, end: 20040509
  52. GEMFIBROZIL [Concomitant]
     Route: 048
     Dates: start: 20030509, end: 20040509
  53. GEMFIBROZIL [Concomitant]
     Route: 048
     Dates: start: 20040401, end: 20050402
  54. GEMFIBROZIL [Concomitant]
     Route: 048
     Dates: start: 20040401, end: 20050402
  55. GEMFIBROZIL [Concomitant]
     Route: 048
     Dates: start: 20041005, end: 20051006
  56. GEMFIBROZIL [Concomitant]
     Route: 048
     Dates: start: 20041005, end: 20051006
  57. LATANOPROST [Concomitant]
     Dosage: 1 DROP IN LEFT EYE AT BEDTIME
     Route: 047
     Dates: start: 20030115, end: 20040116
  58. LATANOPROST [Concomitant]
     Dosage: 1 DROP IN LEFT EYE AT BEDTIME
     Route: 047
     Dates: start: 20030509, end: 20040509
  59. PAROXETINE HCL [Concomitant]
     Indication: ANXIETY
     Route: 048
     Dates: start: 20030115, end: 20040116
  60. TRIAMCINOLONE [Concomitant]
     Dates: start: 20031001, end: 20041001
  61. GALANTAMINE HYDROBROMIDE [Concomitant]
     Route: 048
     Dates: start: 20040401, end: 20050402
  62. GALANTAMINE HYDROBROMIDE [Concomitant]
     Route: 048
     Dates: start: 20040701, end: 20050702
  63. GALANTAMINE HYDROBROMIDE [Concomitant]
     Route: 048
     Dates: start: 20041005, end: 20051006
  64. GALANTAMINE HYDROBROMIDE [Concomitant]
     Route: 048
     Dates: start: 20051014
  65. TRAVOPROST [Concomitant]
     Indication: GLAUCOMA
     Dosage: 1 DROP IN LEFT EYE AT BEDTIME
     Route: 047
     Dates: start: 20040401, end: 20050402
  66. TRAVOPROST [Concomitant]
     Dosage: 1 DROP IN LEFT EYE AT BEDTIME
     Route: 047
     Dates: start: 20051014
  67. AMOXICILLIN/CLAV K [Concomitant]
     Dosage: AMOXICILIN 500/CLAV K 125 MG
     Route: 048
     Dates: start: 20050823, end: 20050922
  68. AMOXICILLIN/CLAV K [Concomitant]
     Dates: start: 20060830
  69. ALBUTEROL [Concomitant]
     Indication: WHEEZING
     Route: 055
     Dates: start: 20030401
  70. ALBUTEROL [Concomitant]
     Dosage: 1 PUFF FOUR TIMES A DAY
     Route: 055
     Dates: start: 20050823, end: 20060824
  71. RANITIDINE HCL [Concomitant]
     Indication: ABDOMINAL DISCOMFORT
     Route: 048
     Dates: start: 20050823, end: 20060824
  72. LOSARTAN POTASSIUM [Concomitant]
     Route: 048
     Dates: start: 20051103
  73. OPTIRAY 320 [Concomitant]
     Dates: start: 20050816
  74. LORAZEPAM [Concomitant]
     Dosage: 2 MG/ML
     Dates: start: 20060821
  75. NITROGLYCERIN [Concomitant]
     Dates: start: 20060821
  76. LEVOFLOXACIN [Concomitant]
     Dosage: 5 MF/ML
     Dates: start: 20060821
  77. LEVOFLOXACIN [Concomitant]
     Dates: start: 20060824
  78. ENOXAPARIN SODIUM [Concomitant]
     Dates: start: 20060822, end: 20060824
  79. HEPARIN [Concomitant]
     Dosage: 5000 U/ML
     Dates: start: 20060824
  80. CEFEPIME [Concomitant]
     Dosage: 2 GM
     Dates: start: 20060827
  81. SODIUM CHLORIDE [Concomitant]
     Dates: start: 20060823
  82. ASPIRIN [Concomitant]
     Dates: start: 20060821
  83. METOPROLOL TARTRATE [Concomitant]
     Dates: start: 20060821, end: 20060821
  84. ACETAMINOPHEN [Concomitant]
     Dates: start: 20060822
  85. ALPRAZOLAM [Concomitant]
     Dates: start: 20060822
  86. HUMALOG [Concomitant]
     Dosage: 100 U/ML
     Dates: start: 20060822
  87. ATORVASTATIN [Concomitant]
     Dates: start: 20060822
  88. PANTOPRAZOLE SODIUM [Concomitant]
     Dates: start: 20060822
  89. ISOSORBIDE MONONITRATE [Concomitant]
     Dates: start: 20060823
  90. POT CHLORIDE [Concomitant]
     Dates: start: 20060824
  91. DIPHENHYDRAMINE HCL [Concomitant]
     Dates: start: 20060829
  92. OXYCODONE HCL [Concomitant]
  93. LANSOPRAZOLE [Concomitant]
     Dates: start: 20060831

REACTIONS (14)
  - BENIGN LUNG NEOPLASM [None]
  - BLOOD TRIGLYCERIDES INCREASED [None]
  - CONVULSION [None]
  - DEATH [None]
  - DEHYDRATION [None]
  - DEMENTIA ALZHEIMER'S TYPE [None]
  - DIABETES MELLITUS [None]
  - HYPERLIPIDAEMIA [None]
  - MENTAL STATUS CHANGES [None]
  - PNEUMONIA [None]
  - PYREXIA [None]
  - RENAL FAILURE [None]
  - TREMOR [None]
  - TROPONIN INCREASED [None]
